FAERS Safety Report 20643441 (Version 1)
Quarter: 2022Q1

REPORT INFORMATION
  Report Type: Spontaneous
  Country: US (occurrence: None)
  Receive Date: 20220326
  Receipt Date: 20220326
  Transmission Date: 20220424
  Serious: Yes (Hospitalization, Other)
  Sender: FDA-Public Use
  Company Number: None

PATIENT
  Age: 34 Year
  Sex: Female
  Weight: 67.5 kg

DRUGS (3)
  1. .DELTA.9-TETRAHYDROCANNABINOL\CANNABIDIOL\HERBALS [Suspect]
     Active Substance: .DELTA.9-TETRAHYDROCANNABINOL\CANNABIDIOL\HERBALS
     Indication: Substance use
     Dosage: OTHER QUANTITY : 10 GUMMIES;?OTHER FREQUENCY : 1.5 GUMMIES ONCE;?
     Route: 048
     Dates: start: 20220226, end: 20220226
  2. IBUPROFEN [Concomitant]
     Active Substance: IBUPROFEN
  3. ACETAMINOPHEN [Concomitant]
     Active Substance: ACETAMINOPHEN

REACTIONS (8)
  - Confusional state [None]
  - Delusion [None]
  - Paranoia [None]
  - Disorientation [None]
  - Amnesia [None]
  - Tachycardia [None]
  - Blood potassium decreased [None]
  - Hallucination [None]

NARRATIVE: CASE EVENT DATE: 20220226
